FAERS Safety Report 23342910 (Version 1)
Quarter: 2023Q4

REPORT INFORMATION
  Report Type: Report from Study
  Country: CL (occurrence: CL)
  Receive Date: 20231227
  Receipt Date: 20231227
  Transmission Date: 20240110
  Serious: Yes (Other)
  Sender: FDA-Public Use
  Company Number: CL-002147023-NVSC2023CL271612

PATIENT
  Age: 9 Year
  Sex: Male
  Weight: 25 kg

DRUGS (1)
  1. OMNITROPE [Suspect]
     Active Substance: SOMATROPIN
     Indication: Product used for unknown indication
     Dosage: 1 MG, QD
     Route: 058
     Dates: start: 20231018, end: 20231218

REACTIONS (3)
  - Growth failure [Unknown]
  - Pain [Unknown]
  - Device malfunction [Unknown]

NARRATIVE: CASE EVENT DATE: 20231125
